FAERS Safety Report 9169298 (Version 2)
Quarter: 2013Q2

REPORT INFORMATION
  Report Type: Report from Study
  Country: US (occurrence: US)
  Receive Date: 20130318
  Receipt Date: 20130401
  Transmission Date: 20140414
  Serious: Yes (Death, Hospitalization)
  Sender: FDA-Public Use
  Company Number: US-ACTELION-A-US2013-77607

PATIENT
  Age: 59 Year
  Sex: Female

DRUGS (4)
  1. VELETRI [Suspect]
     Indication: PULMONARY ARTERIAL HYPERTENSION
     Dosage: 16 NG/KG, PER MIN
     Route: 042
     Dates: start: 20121207
  2. VELETRI [Suspect]
     Dosage: 17 NG/KG, PER MIN
     Route: 042
     Dates: start: 20121209
  3. VELETRI [Suspect]
     Dosage: 26 NG/KG, PER MIN
     Route: 042
     Dates: start: 201212, end: 20130227
  4. TRACLEER [Suspect]
     Indication: PULMONARY ARTERIAL HYPERTENSION
     Route: 048

REACTIONS (9)
  - Pulmonary hypertension [Fatal]
  - Right ventricular failure [Fatal]
  - Atrial fibrillation [Fatal]
  - Disease progression [Fatal]
  - Hypoxia [Fatal]
  - Atrial flutter [Not Recovered/Not Resolved]
  - Respiratory failure [Not Recovered/Not Resolved]
  - Fluid overload [Not Recovered/Not Resolved]
  - Hypothyroidism [Unknown]
